FAERS Safety Report 5472301-X (Version None)
Quarter: 2007Q3

REPORT INFORMATION
  Report Type: 
  Country: None (occurrence: None)
  Receive Date: 20070927
  Receipt Date: 20070911
  Transmission Date: 20080115
  Serious: Yes (Hospitalization, Other)
  Sender: FDA-Public Use
  Company Number: 203804

PATIENT
  Age: 45 Year
  Sex: Female

DRUGS (2)
  1. AVONEX [Suspect]
     Indication: MULTIPLE SCLEROSIS
     Dosage: 30 UG; QW; IM
     Route: 030
     Dates: start: 19990601, end: 20031001
  2. AVONEX [Suspect]
     Indication: MULTIPLE SCLEROSIS
     Dosage: 30 UG; QW; IM
     Route: 030
     Dates: end: 20070501

REACTIONS (8)
  - ABDOMINAL HERNIA [None]
  - BLOOD PRESSURE INCREASED [None]
  - GOITRE [None]
  - HEART RATE INCREASED [None]
  - KNEE OPERATION [None]
  - SMEAR CERVIX ABNORMAL [None]
  - THYROID NEOPLASM [None]
  - UTERINE LEIOMYOMA [None]
